FAERS Safety Report 4986761-1 (Version None)
Quarter: 2006Q2

REPORT INFORMATION
  Report Type: 
  Country: None (occurrence: None)
  Receive Date: 20060428
  Receipt Date: 20051013
  Transmission Date: 20061013
  Serious: Yes (Hospitalization, Disabling)
  Sender: FDA-Public Use
  Company Number: PR-MERCK-0510USA07388

PATIENT
  Age: 50 Year
  Sex: Male
  Weight: 77 kg

DRUGS (8)
  1. VIOXX [Suspect]
     Indication: LIMB INJURY
     Route: 048
     Dates: start: 20000901, end: 20040901
  2. VIOXX [Suspect]
     Route: 048
     Dates: start: 20010206, end: 20010201
  3. VIOXX [Suspect]
     Indication: ARTHRITIS
     Route: 048
     Dates: start: 20000901, end: 20040901
  4. VIOXX [Suspect]
     Route: 048
     Dates: start: 20010206, end: 20010201
  5. LIPITOR [Concomitant]
     Indication: BLOOD CHOLESTEROL
     Route: 065
     Dates: start: 19990101
  6. GLUCOTROL [Concomitant]
     Indication: DIABETES MELLITUS
     Route: 065
     Dates: start: 19990101
  7. GLUCOPHAGE [Concomitant]
     Indication: DIABETES MELLITUS
     Route: 065
     Dates: start: 19990101
  8. CENTRUM SILVER [Concomitant]
     Route: 065

REACTIONS (8)
  - ANXIETY [None]
  - CARDIAC FAILURE CONGESTIVE [None]
  - DEPRESSION [None]
  - DYSPEPSIA [None]
  - HYPERTENSION [None]
  - INSOMNIA [None]
  - ISCHAEMIA [None]
  - MYOCARDIAL INFARCTION [None]
